FAERS Safety Report 19485560 (Version 3)
Quarter: 2021Q3

REPORT INFORMATION
  Report Type: Spontaneous
  Country: BE (occurrence: BE)
  Receive Date: 20210702
  Receipt Date: 20210713
  Transmission Date: 20211014
  Serious: Yes (Other)
  Sender: FDA-Public Use
  Company Number: BE-AMGEN-BELSP2021098987

PATIENT
  Age: 60 Year
  Sex: Male

DRUGS (6)
  1. NPLATE [Suspect]
     Active Substance: ROMIPLOSTIM
     Indication: IMMUNE THROMBOCYTOPENIA
     Dosage: UNK
     Route: 065
  2. NPLATE [Suspect]
     Active Substance: ROMIPLOSTIM
     Dosage: 7 MILLIGRAM/KILOGRAM
     Route: 065
     Dates: start: 2014
  3. PIRACETAM [Concomitant]
     Active Substance: PIRACETAM
     Dosage: UNK
  4. NPLATE [Suspect]
     Active Substance: ROMIPLOSTIM
     Dosage: 8 MILLIGRAM/KILOGRAM
     Route: 065
     Dates: start: 2014
  5. NPLATE [Suspect]
     Active Substance: ROMIPLOSTIM
     Dosage: 5 MILLIGRAM/KILOGRAM
     Route: 065
     Dates: start: 20131008
  6. ASPIRIN [ACETYLSALICYLIC ACID] [Concomitant]
     Active Substance: ASPIRIN
     Dosage: 100 MICROGRAM, QD

REACTIONS (3)
  - Influenza [Unknown]
  - Peripheral ischaemia [Unknown]
  - Cerebrovascular accident [Recovered/Resolved]

NARRATIVE: CASE EVENT DATE: 2012
